FAERS Safety Report 25716569 (Version 2)
Quarter: 2025Q3

REPORT INFORMATION
  Report Type: Spontaneous
  Country: US (occurrence: US)
  Receive Date: 20250822
  Receipt Date: 20250826
  Transmission Date: 20251020
  Serious: Yes (Other)
  Sender: PFIZER
  Company Number: US-PFIZER INC-PV202500101089

PATIENT
  Age: 43 Year
  Sex: Female

DRUGS (1)
  1. LORBRENA [Suspect]
     Active Substance: LORLATINIB
     Indication: Non-small cell lung cancer metastatic
     Dates: start: 2019

REACTIONS (8)
  - Metastases to central nervous system [Unknown]
  - Hallucination, auditory [Unknown]
  - Blood cholesterol increased [Unknown]
  - Weight increased [Unknown]
  - Sleep disorder [Unknown]
  - Memory impairment [Unknown]
  - Mood altered [Unknown]
  - Tumour marker increased [Unknown]
